FAERS Safety Report 19582963 (Version 1)
Quarter: 2021Q3

REPORT INFORMATION
  Report Type: Spontaneous
  Country: US (occurrence: US)
  Receive Date: 20210720
  Receipt Date: 20210720
  Transmission Date: 20211014
  Serious: Yes (Other)
  Sender: FDA-Public Use
  Company Number: None

PATIENT
  Age: 51 Year
  Sex: Female
  Weight: 102.15 kg

DRUGS (6)
  1. XARELTO [Concomitant]
     Active Substance: RIVAROXABAN
  2. BUPRENORPHINE AND NALOXONE  SUBLINGUAL FILM 8 MG/2 MG [Suspect]
     Active Substance: BUPRENORPHINE\NALOXONE
     Indication: DRUG DEPENDENCE
     Dosage: ?          QUANTITY:1 PATCH(ES);?
     Route: 060
  3. VENLAFAXINE [Concomitant]
     Active Substance: VENLAFAXINE HYDROCHLORIDE
  4. CHLORTHALIDONE. [Concomitant]
     Active Substance: CHLORTHALIDONE
  5. TEMAZEPAM. [Concomitant]
     Active Substance: TEMAZEPAM
  6. ROSUVASTATIN. [Concomitant]
     Active Substance: ROSUVASTATIN

REACTIONS (6)
  - Incorrect dose administered [None]
  - Oral discomfort [None]
  - Gastric disorder [None]
  - Withdrawal syndrome [None]
  - Restlessness [None]
  - Product substitution issue [None]

NARRATIVE: CASE EVENT DATE: 20210720
